FAERS Safety Report 10749946 (Version 1)
Quarter: 2015Q1

REPORT INFORMATION
  Report Type: Spontaneous
  Country: US (occurrence: US)
  Receive Date: 20150129
  Receipt Date: 20150129
  Transmission Date: 20150721
  Serious: Yes (Hospitalization)
  Sender: FDA-Public Use
  Company Number: US-GILEAD-2015-0134247

PATIENT
  Age: 93 Year
  Sex: Male

DRUGS (9)
  1. LETAIRIS [Suspect]
     Active Substance: AMBRISENTAN
     Indication: COR PULMONALE CHRONIC
     Dosage: 10 MG, QD
     Route: 065
     Dates: start: 20110422
  2. DORZOLAMIDE [Concomitant]
     Active Substance: DORZOLAMIDE
  3. COUMADIN [Concomitant]
     Active Substance: WARFARIN SODIUM
  4. NORVASC [Concomitant]
     Active Substance: AMLODIPINE BESYLATE
  5. PHENYTOIN. [Concomitant]
     Active Substance: PHENYTOIN
  6. FUROSEMIDE. [Concomitant]
     Active Substance: FUROSEMIDE
  7. ADEMPAS [Concomitant]
     Active Substance: RIOCIGUAT
  8. POTASSIUM [Concomitant]
     Active Substance: POTASSIUM
  9. DIGOXIN. [Concomitant]
     Active Substance: DIGOXIN

REACTIONS (1)
  - Haematochezia [Not Recovered/Not Resolved]

NARRATIVE: CASE EVENT DATE: 20150120
